FAERS Safety Report 6278555-4 (Version None)
Quarter: 2009Q3

REPORT INFORMATION
  Report Type: 
  Country: None (occurrence: None)
  Receive Date: 20090722
  Receipt Date: 20080908
  Transmission Date: 20100115
  Serious: No
  Sender: FDA-Public Use
  Company Number: US-BAUSCH-2008BL003900

PATIENT
  Age: 38 Year
  Sex: Male

DRUGS (3)
  1. OPCON-A [Suspect]
     Indication: EYE ALLERGY
     Route: 047
     Dates: start: 20080907, end: 20080907
  2. MEGA MAN VITAMINS [Concomitant]
     Route: 048
  3. ALLEGRA [Concomitant]

REACTIONS (4)
  - OCULAR HYPERAEMIA [None]
  - SENSATION OF FOREIGN BODY [None]
  - UNEVALUABLE EVENT [None]
  - VISION BLURRED [None]
